FAERS Safety Report 5994825-9 (Version None)
Quarter: 2008Q4

REPORT INFORMATION
  Report Type: 
  Country: None (occurrence: None)
  Receive Date: 20081212
  Receipt Date: 20080915
  Transmission Date: 20090506
  Serious: No
  Sender: FDA-Public Use
  Company Number: US-ABBOTT-08P-163-0476523-00

PATIENT
  Sex: Female
  Weight: 88.984 kg

DRUGS (4)
  1. HUMIRA [Suspect]
     Indication: RHEUMATOID ARTHRITIS
     Route: 058
     Dates: start: 20080610, end: 20080724
  2. NAPROSEN [Concomitant]
     Indication: INFLAMMATION
     Dosage: 1 TABLET
     Route: 048
  3. GENERIC HYDROCODONE [Concomitant]
     Indication: ARTHRALGIA
     Dosage: 1 TABLET
     Route: 048
  4. ERGOCALCIFEROL [Concomitant]
     Indication: PROPHYLAXIS
     Route: 048

REACTIONS (3)
  - BLOOD PRESSURE INCREASED [None]
  - CALCINOSIS [None]
  - OSTEOARTHRITIS [None]
